FAERS Safety Report 20239357 (Version 1)
Quarter: 2021Q4

REPORT INFORMATION
  Report Type: Spontaneous
  Country: IT (occurrence: IT)
  Receive Date: 20211228
  Receipt Date: 20211228
  Transmission Date: 20220303
  Serious: Yes (Other)
  Sender: FDA-Public Use
  Company Number: IT-ADIENNEP-2021AD000524

PATIENT
  Age: 62 Year
  Sex: Male

DRUGS (5)
  1. METHOTREXATE [Suspect]
     Active Substance: METHOTREXATE
     Indication: Chemotherapy
     Dosage: UNK
     Route: 037
  2. DEXAMETHASONE [Suspect]
     Active Substance: DEXAMETHASONE
     Indication: Chemotherapy
     Dosage: UNK
     Route: 037
  3. ETOPOSIDE [Suspect]
     Active Substance: ETOPOSIDE
     Indication: Autologous haematopoietic stem cell transplant
     Dosage: 200 MILLIGRAM/SQ. METER (ON DAYS 2-4)
  4. THIOTEPA [Suspect]
     Active Substance: THIOTEPA
     Indication: Autologous haematopoietic stem cell transplant
     Dosage: 5 MILLIGRAM/KILOGRAM (ON DAY 5)
  5. FOTEMUSTINE [Suspect]
     Active Substance: FOTEMUSTINE
     Indication: Autologous haematopoietic stem cell transplant
     Dosage: 300 MILLIGRAM/SQ. METER (ON DAY 1)

REACTIONS (2)
  - Escherichia sepsis [Recovered/Resolved]
  - Septic shock [Recovered/Resolved]
